FAERS Safety Report 9729092 (Version 1)
Quarter: 2013Q4

REPORT INFORMATION
  Report Type: Spontaneous
  Country: GB (occurrence: GB)
  Receive Date: 20131204
  Receipt Date: 20131204
  Transmission Date: 20140711
  Serious: Yes (Other)
  Sender: FDA-Public Use
  Company Number: PHHY2013GB136587

PATIENT
  Sex: Female

DRUGS (6)
  1. METRONIDAZOLE [Suspect]
     Route: 048
  2. CIMETIDINE [Suspect]
     Route: 048
  3. LORATADINE [Suspect]
     Route: 048
  4. PAROXETINE [Suspect]
     Route: 048
  5. PARACETAMOL [Suspect]
     Route: 048
  6. ETHANOL [Suspect]
     Route: 048

REACTIONS (3)
  - Abortion spontaneous [Unknown]
  - Overdose [Unknown]
  - Maternal exposure during pregnancy [Unknown]
